FAERS Safety Report 9955909 (Version 1)
Quarter: 2014Q1

REPORT INFORMATION
  Report Type: Report from Study
  Country: US (occurrence: US)
  Receive Date: 20140304
  Receipt Date: 20140304
  Transmission Date: 20141002
  Serious: No
  Sender: FDA-Public Use
  Company Number: US-ABBVIE-13P-163-1083421-00

PATIENT
  Age: 32 Year
  Sex: Female

DRUGS (3)
  1. HUMIRA [Suspect]
     Indication: ANKYLOSING SPONDYLITIS
     Dates: start: 201004, end: 201104
  2. HUMIRA [Suspect]
     Dates: start: 201204
  3. PROPRANOLOL [Concomitant]
     Indication: MIGRAINE PROPHYLAXIS
     Dosage: 80 MG DAILY

REACTIONS (3)
  - Urinary tract infection [Recovering/Resolving]
  - Pharyngitis streptococcal [Recovering/Resolving]
  - Cough [Not Recovered/Not Resolved]
